FAERS Safety Report 8031796-8 (Version None)
Quarter: 2012Q1

REPORT INFORMATION
  Report Type: 
  Country: None (occurrence: None)
  Receive Date: 20120109
  Receipt Date: 20120104
  Transmission Date: 20120608
  Serious: Yes (Hospitalization)
  Sender: FDA-Public Use
  Company Number: FR-ROCHE-1027634

PATIENT
  Sex: Female

DRUGS (8)
  1. HYDROCORTISONE [Concomitant]
     Route: 042
     Dates: start: 20110203
  2. PLAQUENIL [Concomitant]
     Dosage: PLAQUENIL 200
     Dates: end: 20110201
  3. ROCEPHIN [Suspect]
     Indication: PRODUCT USED FOR UNKNOWN INDICATION
     Route: 042
     Dates: start: 20110201, end: 20110211
  4. VANCOMYCIN [Suspect]
     Indication: PRODUCT USED FOR UNKNOWN INDICATION
     Route: 042
     Dates: start: 20110205, end: 20110211
  5. CLINDAMYCIN HCL [Suspect]
     Indication: PRODUCT USED FOR UNKNOWN INDICATION
     Route: 042
     Dates: start: 20110205, end: 20110211
  6. CIPROFLOXACIN [Suspect]
     Indication: PRODUCT USED FOR UNKNOWN INDICATION
     Route: 042
     Dates: start: 20110203, end: 20110205
  7. PYOSTACINE [Suspect]
     Indication: PRODUCT USED FOR UNKNOWN INDICATION
     Route: 042
     Dates: start: 20110203, end: 20110205
  8. PLAQUENIL [Concomitant]
     Dates: start: 20110304

REACTIONS (3)
  - PANCREATITIS ACUTE [None]
  - DRUG RASH WITH EOSINOPHILIA AND SYSTEMIC SYMPTOMS [None]
  - SKIN TEST NEGATIVE [None]
